FAERS Safety Report 6464907-6 (Version None)
Quarter: 2009Q4

REPORT INFORMATION
  Report Type: 
  Country: None (occurrence: None)
  Receive Date: 20091201
  Receipt Date: 20091124
  Transmission Date: 20100525
  Serious: Yes (Other)
  Sender: FDA-Public Use
  Company Number: B0607748A

PATIENT

DRUGS (10)
  1. SERETIDE [Suspect]
     Indication: ASTHMA
     Dosage: 1PUFF TWICE PER DAY
     Route: 055
     Dates: start: 20081201
  2. UNKNOWN DRUG [Concomitant]
  3. ATORVASTATIN [Concomitant]
  4. NITROLINGUAL [Concomitant]
     Indication: PAIN
  5. ASPIRIN [Concomitant]
  6. QUININE BISULPHATE [Concomitant]
  7. LANSOPRAZOLE [Concomitant]
  8. UNKNOWN DRUG [Concomitant]
     Dosage: 60MG PER DAY
  9. GLICLAZIDE [Concomitant]
     Dosage: 80MG TWICE PER DAY
  10. ATROVENT [Concomitant]

REACTIONS (2)
  - BLOOD GLUCOSE INCREASED [None]
  - DIABETES MELLITUS INADEQUATE CONTROL [None]
